FAERS Safety Report 6250890-5 (Version None)
Quarter: 2009Q2

REPORT INFORMATION
  Report Type: 
  Country: None (occurrence: None)
  Receive Date: 20090630
  Receipt Date: 20090511
  Transmission Date: 20091009
  Serious: No
  Sender: FDA-Public Use
  Company Number: US-BAUSCH-2009BL002207

PATIENT
  Age: 78 Year
  Sex: Female
  Weight: 81 kg

DRUGS (5)
  1. ALAWAY [Suspect]
     Indication: EYE PRURITUS
     Route: 047
     Dates: start: 20090501, end: 20090510
  2. OMEPRAZOLE [Concomitant]
     Indication: GASTROOESOPHAGEAL REFLUX DISEASE
     Route: 048
  3. AMLODIPINE [Concomitant]
     Indication: HYPERTENSION
     Route: 048
  4. LEVOTHYROXINE SODIUM [Concomitant]
     Indication: THYROID DISORDER
     Route: 048
  5. OXYBUTYNIN CHLORIDE [Concomitant]
     Indication: BLADDER DISORDER
     Route: 048

REACTIONS (1)
  - DRUG INEFFECTIVE [None]
